FAERS Safety Report 20966722 (Version 1)
Quarter: 2022Q2

REPORT INFORMATION
  Report Type: Spontaneous
  Country: US (occurrence: None)
  Receive Date: 20220615
  Receipt Date: 20220615
  Transmission Date: 20220721
  Serious: Yes (Death)
  Sender: FDA-Public Use
  Company Number: None

PATIENT
  Age: 12 Week
  Sex: Female
  Weight: 3.8 kg

DRUGS (9)
  1. ESCITALOPRAM [Suspect]
     Active Substance: ESCITALOPRAM OXALATE
     Indication: Anxiety
     Dosage: OTHER FREQUENCY : LMP-DELIVERY;?
  2. DULERA [Concomitant]
  3. SPIRIVA [Concomitant]
     Active Substance: TIOTROPIUM BROMIDE MONOHYDRATE
  4. CINGULAIR [Concomitant]
  5. ALBUTEROL [Concomitant]
  6. AZYTHROMYCIN [Concomitant]
  7. BUDEFONIDE [Concomitant]
  8. PRILOSEC [Concomitant]
     Active Substance: OMEPRAZOLE MAGNESIUM
  9. MONTELUKAST [Concomitant]

REACTIONS (2)
  - Sudden infant death syndrome [None]
  - Cardiac arrest [None]

NARRATIVE: CASE EVENT DATE: 20201228
